FAERS Safety Report 9648261 (Version 2)
Quarter: 2013Q4

REPORT INFORMATION
  Report Type: Spontaneous
  Country: DK (occurrence: CA)
  Receive Date: 20131028
  Receipt Date: 20131105
  Transmission Date: 20140711
  Serious: Yes (Other)
  Sender: FDA-Public Use
  Company Number: CA-FRI-1000050519

PATIENT
  Age: 54 Year
  Sex: Male

DRUGS (1)
  1. ESCITALOPRAM [Suspect]
     Indication: DEPRESSION
     Dosage: OVERDOSE: (30 MG DAILY)
     Route: 048
     Dates: start: 201109

REACTIONS (2)
  - Nephrolithiasis [Not Recovered/Not Resolved]
  - Prescribed overdose [Not Recovered/Not Resolved]
